FAERS Safety Report 24571948 (Version 5)
Quarter: 2025Q4

REPORT INFORMATION
  Report Type: Report from Study
  Country: US (occurrence: None)
  Receive Date: 20241101
  Receipt Date: 20251114
  Transmission Date: 20260117
  Serious: Yes (Hospitalization, Other)
  Sender: UCB
  Company Number: US-UCBSA-2024056590

PATIENT
  Age: 3 Year
  Weight: 16.8 kg

DRUGS (16)
  1. FENFLURAMINE [Suspect]
     Active Substance: FENFLURAMINE
     Indication: Lennox-Gastaut syndrome
     Dosage: 1.2 MILLILITER, 2X/DAY (BID)
  2. FENFLURAMINE [Suspect]
     Active Substance: FENFLURAMINE
     Dosage: UNK
  3. FENFLURAMINE [Suspect]
     Active Substance: FENFLURAMINE
     Dosage: 1.2 MILLILITER, 2X/DAY (BID)
  4. FENFLURAMINE [Suspect]
     Active Substance: FENFLURAMINE
     Dosage: 5.28 MG/DAY
  5. FENFLURAMINE [Suspect]
     Active Substance: FENFLURAMINE
     Dosage: 0.39MG/KG/DAY (6.6 MILLIGRAM PER DAY)
  6. DIASTAT ACUDIAL [Concomitant]
     Active Substance: DIAZEPAM
     Indication: Seizure
     Dosage: 5 MILLIGRAM, AS NEEDED (PRN), RECTAL KIT
  7. NEXIUM [Concomitant]
     Active Substance: ESOMEPRAZOLE MAGNESIUM
     Indication: Product used for unknown indication
     Dosage: 10 MILLIGRAM, ONCE DAILY (QD)
  8. ketocal [Concomitant]
     Indication: Product used for unknown indication
     Dosage: 126 GRAM, ONCE DAILY (QD), POWDER
  9. CARNITOR [Concomitant]
     Active Substance: LEVOCARNITINE
     Indication: Product used for unknown indication
     Dosage: 1.5 MILLILITER, 2X/DAY (BID), SOLUTION
  10. MELATONIN [Concomitant]
     Active Substance: MELATONIN
     Indication: Product used for unknown indication
     Dosage: 1 MILLIGRAM AS NEEDED (PRN)
  11. MULTI VITAMIN ORAL [Concomitant]
     Indication: Product used for unknown indication
     Dosage: 0.5 MILLILITER
  12. VITAMINS [Concomitant]
     Active Substance: VITAMINS
     Indication: Product used for unknown indication
     Dosage: 0.5 MILLILITER
  13. MIRALAX [Concomitant]
     Active Substance: POLYETHYLENE GLYCOL 3350
     Indication: Product used for unknown indication
     Dosage: 17 GRAM, AS NEEDED (PRN)
  14. vlto!lmin 66 [Concomitant]
     Indication: Product used for unknown indication
     Dosage: 1 MILLILITER
  15. SABRIL [Concomitant]
     Active Substance: VIGABATRIN
     Indication: Seizure
     Dosage: 2 MILLILITER, 2X/DAY (BID)
  16. Neurontln [Concomitant]
     Indication: Product used for unknown indication
     Dosage: UNK, AS NEEDED (PRN)

REACTIONS (8)
  - Ear infection [Not Recovered/Not Resolved]
  - Epilepsy [Unknown]
  - Restlessness [Unknown]
  - Psychomotor hyperactivity [Unknown]
  - Fatigue [Unknown]
  - Pyrexia [Unknown]
  - Abnormal behaviour [Unknown]
  - Neck pain [Not Recovered/Not Resolved]
